FAERS Safety Report 12179983 (Version 1)
Quarter: 2016Q1

REPORT INFORMATION
  Report Type: Spontaneous
  Country: US (occurrence: US)
  Receive Date: 20160315
  Receipt Date: 20160315
  Transmission Date: 20160526
  Serious: No
  Sender: FDA-Public Use
  Company Number: US-PFIZER INC-2016095323

PATIENT

DRUGS (1)
  1. EMBEDA [Suspect]
     Active Substance: MORPHINE SULFATE\NALTREXONE HYDROCHLORIDE
     Dosage: UNK

REACTIONS (6)
  - Thyroid disorder [Unknown]
  - Asthma [Unknown]
  - Dyspnoea [Unknown]
  - Renal disorder [Unknown]
  - Liver disorder [Unknown]
  - Pancreatic disorder [Unknown]
